FAERS Safety Report 6159351-5 (Version None)
Quarter: 2009Q2

REPORT INFORMATION
  Report Type: 
  Country: None (occurrence: None)
  Receive Date: 20090415
  Receipt Date: 20090415
  Transmission Date: 20091009
  Serious: No
  Sender: FDA-Public Use
  Company Number: None

PATIENT
  Age: 43 Year
  Sex: Female
  Weight: 72.5755 kg

DRUGS (4)
  1. ZYMAR [Suspect]
     Indication: CORNEAL EROSION
     Dosage: 2 - 3 DAYS; 1 DOZE
     Dates: start: 20090201, end: 20090216
  2. ZYMAR [Suspect]
     Indication: EXCORIATION
     Dosage: 2 - 3 DAYS; 1 DOZE
     Dates: start: 20090201, end: 20090216
  3. ZYMAR [Suspect]
     Indication: CORNEAL EROSION
     Dosage: 2 - 3 DAYS; 1 DOZE
     Dates: start: 20090412, end: 20090419
  4. ZYMAR [Suspect]
     Indication: EXCORIATION
     Dosage: 2 - 3 DAYS; 1 DOZE
     Dates: start: 20090412, end: 20090419

REACTIONS (1)
  - MYDRIASIS [None]
